FAERS Safety Report 9471815 (Version 1)
Quarter: 2013Q3

REPORT INFORMATION
  Report Type: Spontaneous
  Country: AT (occurrence: AT)
  Receive Date: 20130822
  Receipt Date: 20130822
  Transmission Date: 20140515
  Serious: Yes (Other)
  Sender: FDA-Public Use
  Company Number: AT-ASTRAZENECA-2013SE63257

PATIENT
  Sex: 0

DRUGS (1)
  1. BRILIQUE [Suspect]
     Route: 048

REACTIONS (2)
  - Oedema [Unknown]
  - Dyspnoea [Unknown]
